FAERS Safety Report 4532096-0 (Version None)
Quarter: 2004Q4

REPORT INFORMATION
  Report Type: 
  Country: None (occurrence: None)
  Receive Date: 20041217
  Receipt Date: 20041206
  Transmission Date: 20050328
  Serious: Yes (Hospitalization)
  Sender: FDA-Public Use
  Company Number: 2004AP06092

PATIENT
  Age: 80 Year
  Sex: Male

DRUGS (3)
  1. ZOLADEX [Suspect]
     Indication: PROSTATE CANCER
     Dosage: 3.6 MG Q4WK SQ
     Route: 058
     Dates: start: 20041102
  2. ODYNE [Suspect]
     Indication: PROSTATE CANCER
     Dosage: 375 MG DAILY PO
     Route: 048
     Dates: start: 20030407, end: 20041119
  3. LEUPROLIDE ACETATE [Concomitant]

REACTIONS (2)
  - HAEMORRHAGE SUBCUTANEOUS [None]
  - THROMBOCYTOPENIA [None]
